FAERS Safety Report 9639336 (Version 3)
Quarter: 2013Q4

REPORT INFORMATION
  Report Type: Spontaneous
  Country: US (occurrence: US)
  Receive Date: 20131022
  Receipt Date: 20131105
  Transmission Date: 20140711
  Serious: No
  Sender: FDA-Public Use
  Company Number: US-009507513-1310USA004785

PATIENT
  Age: 77 Year
  Sex: Female

DRUGS (5)
  1. DULERA [Suspect]
     Indication: ASTHMA
     Dosage: 100/5 MCG, 2 PUFFS DAILY
     Route: 055
     Dates: start: 20130930
  2. ADVAIR [Suspect]
  3. XOPENEX [Concomitant]
  4. NIASPAN [Concomitant]
  5. MICARDIS [Concomitant]

REACTIONS (8)
  - Oral disorder [Unknown]
  - Dysgeusia [Unknown]
  - Wheezing [Unknown]
  - Dysphonia [Unknown]
  - Dyspnoea [Unknown]
  - Product quality issue [Unknown]
  - Nervousness [Unknown]
  - Tremor [Unknown]
